FAERS Safety Report 6608529-2 (Version None)
Quarter: 2010Q1

REPORT INFORMATION
  Report Type: 
  Country: None (occurrence: None)
  Receive Date: 20100212
  Receipt Date: 20091124
  Transmission Date: 20100710
  Serious: No
  Sender: FDA-Public Use
  Company Number: 1000010373

PATIENT
  Age: 63 Year
  Sex: Female

DRUGS (4)
  1. SAVELLA [Suspect]
     Indication: FIBROMYALGIA
     Dosage: ORAL
     Route: 048
  2. THYROID TAB [Concomitant]
  3. CELEXA [Concomitant]
  4. VITAMIN TAB [Concomitant]

REACTIONS (4)
  - CHEST PAIN [None]
  - DIZZINESS [None]
  - NAUSEA [None]
  - PALPITATIONS [None]
